FAERS Safety Report 15746679 (Version 1)
Quarter: 2018Q4

REPORT INFORMATION
  Report Type: Spontaneous
  Country: PR (occurrence: PR)
  Receive Date: 20181220
  Receipt Date: 20181220
  Transmission Date: 20190205
  Serious: No
  Sender: FDA-Public Use
  Company Number: PR-PRINSTON PHARMACEUTICAL INC.-2018PRN01325

PATIENT
  Sex: Male

DRUGS (4)
  1. VALSARTAN. [Suspect]
     Active Substance: VALSARTAN
     Indication: HYPERTENSION
     Dosage: 80 MG, 1X/DAY
     Route: 048
     Dates: start: 2009
  2. VALSARTAN. [Suspect]
     Active Substance: VALSARTAN
     Dosage: 80 MG, 1X/DAY
     Dates: start: 2009
  3. VALSARTAN. [Suspect]
     Active Substance: VALSARTAN
     Dosage: 80 MG, 2X/DAY
     Route: 048
     Dates: start: 2009
  4. VALSARTAN. [Suspect]
     Active Substance: VALSARTAN
     Dosage: 80 MG, 2X/DAY
     Route: 048
     Dates: start: 2009

REACTIONS (4)
  - Dizziness [Not Recovered/Not Resolved]
  - Recalled product administered [Unknown]
  - Somnolence [Recovering/Resolving]
  - Rhinorrhoea [Recovering/Resolving]

NARRATIVE: CASE EVENT DATE: 20180828
